FAERS Safety Report 4663671-0 (Version None)
Quarter: 2005Q2

REPORT INFORMATION
  Report Type: 
  Country: None (occurrence: None)
  Receive Date: 20050517
  Receipt Date: 20050502
  Transmission Date: 20051028
  Serious: Yes (Other)
  Sender: FDA-Public Use
  Company Number: 2005068195

PATIENT
  Age: 77 Year
  Sex: Male
  Weight: 77.1115 kg

DRUGS (1)
  1. SUDAFED SEVERE COLD CAPLETS (PARACETAMOL, PSEUDOEPHEDRINE, DEXTROMETHO [Suspect]
     Indication: NASOPHARYNGITIS
     Dosage: 2 CAPLETS BID, ORAL
     Route: 048
     Dates: start: 20050424, end: 20050426

REACTIONS (5)
  - DYSURIA [None]
  - FEELING ABNORMAL [None]
  - INSOMNIA [None]
  - PAIN [None]
  - URINARY RETENTION [None]
